FAERS Safety Report 5043935-1 (Version None)
Quarter: 2006Q2

REPORT INFORMATION
  Report Type: 
  Country: None (occurrence: None)
  Receive Date: 20060601
  Receipt Date: 20060404
  Transmission Date: 20061013
  Serious: No
  Sender: FDA-Public Use
  Company Number: US200604000554

PATIENT
  Sex: Male

DRUGS (1)
  1. CYMBALTA [Suspect]
     Dosage: 60 MG, DAILY (1/D)
     Dates: start: 20060301

REACTIONS (4)
  - ACTIVITIES OF DAILY LIVING IMPAIRED [None]
  - ASTHENIA [None]
  - FATIGUE [None]
  - HYPERHIDROSIS [None]
